FAERS Safety Report 6735593-2 (Version None)
Quarter: 2010Q2

REPORT INFORMATION
  Report Type: 
  Country: None (occurrence: None)
  Receive Date: 20100521
  Receipt Date: 20100511
  Transmission Date: 20101027
  Serious: Yes (Hospitalization, Other)
  Sender: FDA-Public Use
  Company Number: CA-JNJFOC-20100303235

PATIENT
  Sex: Male
  Weight: 53 kg

DRUGS (6)
  1. REMICADE [Suspect]
     Indication: ANKYLOSING SPONDYLITIS
     Route: 042
  2. REMICADE [Suspect]
     Route: 042
  3. REMICADE [Suspect]
     Indication: CROHN'S DISEASE
     Route: 042
  4. REMICADE [Suspect]
     Route: 042
  5. IMURAN [Concomitant]
     Route: 048
  6. IMURAN [Concomitant]
     Route: 048

REACTIONS (4)
  - CROHN'S DISEASE [None]
  - ECZEMA [None]
  - PYODERMA GANGRENOSUM [None]
  - WOUND INFECTION [None]
